FAERS Safety Report 17004308 (Version 7)
Quarter: 2021Q1

REPORT INFORMATION
  Report Type: Spontaneous
  Country: JP (occurrence: JP)
  Receive Date: 20191107
  Receipt Date: 20210222
  Transmission Date: 20210419
  Serious: Yes (Other)
  Sender: FDA-Public Use
  Company Number: JP-BRISTOL-MYERS SQUIBB COMPANY-BMS-2019-106236

PATIENT
  Age: 70 Year
  Sex: Female

DRUGS (4)
  1. OPDIVO [Suspect]
     Active Substance: NIVOLUMAB
     Dosage: UNK
     Route: 041
     Dates: start: 20190614, end: 20190614
  2. OPDIVO [Suspect]
     Active Substance: NIVOLUMAB
     Indication: NON-SMALL CELL LUNG CANCER RECURRENT
     Dosage: UNK UNK, Q2WK
     Route: 041
     Dates: start: 20190315, end: 20190524
  3. INSULIN ABBOTT [Concomitant]
     Indication: TYPE 1 DIABETES MELLITUS
     Dosage: UNK
     Route: 065
  4. OPDIVO [Suspect]
     Active Substance: NIVOLUMAB
     Dosage: UNK UNK, Q2WK
     Route: 041
     Dates: start: 20190719

REACTIONS (2)
  - Colitis [Unknown]
  - Cholangitis sclerosing [Recovering/Resolving]
